FAERS Safety Report 11138157 (Version 2)
Quarter: 2015Q2

REPORT INFORMATION
  Report Type: Spontaneous
  Country: JP (occurrence: JP)
  Receive Date: 20150526
  Receipt Date: 20150608
  Transmission Date: 20150821
  Serious: Yes (Hospitalization, Other)
  Sender: FDA-Public Use
  Company Number: PHJP2015JP008190

PATIENT
  Age: 26 Year
  Sex: Male
  Weight: 74 kg

DRUGS (1)
  1. NEORAL [Suspect]
     Active Substance: CYCLOSPORINE
     Indication: DERMATITIS ATOPIC
     Dosage: 100 MG, BID (50 MG, 4 CAPSULES, DIVIDED INTO TWO ADMINISTRATIONS)
     Route: 048
     Dates: start: 200911

REACTIONS (6)
  - Abnormal behaviour [Unknown]
  - Endocarditis [Unknown]
  - Dermatitis [Unknown]
  - Embolic cerebral infarction [Unknown]
  - Altered state of consciousness [Recovered/Resolved]
  - Pyrexia [Unknown]

NARRATIVE: CASE EVENT DATE: 201111
